FAERS Safety Report 19000899 (Version 1)
Quarter: 2021Q1

REPORT INFORMATION
  Report Type: Spontaneous
  Country: US (occurrence: US)
  Receive Date: 20210312
  Receipt Date: 20210312
  Transmission Date: 20210420
  Serious: No
  Sender: FDA-Public Use
  Company Number: US-AUROBINDO-AUR-APL-2020-016553

PATIENT
  Age: 43 Year
  Sex: Female
  Weight: 81.63 kg

DRUGS (1)
  1. LAMOTRIGINE TABLET [Suspect]
     Active Substance: LAMOTRIGINE
     Indication: BIPOLAR II DISORDER
     Dosage: 2 DOSAGE FORM, ONCE A DAY AT NIGHT
     Route: 065

REACTIONS (7)
  - Malaise [Recovering/Resolving]
  - Crying [Recovering/Resolving]
  - Loss of personal independence in daily activities [Recovering/Resolving]
  - Helplessness [Recovering/Resolving]
  - Product substitution issue [Unknown]
  - Product quality issue [Unknown]
  - Depression [Recovering/Resolving]
